FAERS Safety Report 8518234-3 (Version None)
Quarter: 2012Q3

REPORT INFORMATION
  Report Type: 
  Country: None (occurrence: None)
  Receive Date: 20120718
  Receipt Date: 20111130
  Transmission Date: 20120928
  Serious: No
  Sender: FDA-Public Use
  Company Number: US-BRISTOL-MYERS SQUIBB COMPANY-16261117

PATIENT
  Age: 88 Year
  Sex: Female

DRUGS (3)
  1. SYNTHROID [Concomitant]
  2. COUMADIN [Suspect]
     Dosage: 1DF:2-3MG AFTER STENT REPLACEMENT.
  3. ROGAINE [Suspect]

REACTIONS (1)
  - ALOPECIA [None]
